FAERS Safety Report 19727503 (Version 2)
Quarter: 2021Q3

REPORT INFORMATION
  Report Type: Report from Study
  Country: JP (occurrence: JP)
  Receive Date: 20210819
  Receipt Date: 20210826
  Transmission Date: 20211014
  Serious: Yes (Hospitalization)
  Sender: FDA-Public Use
  Company Number: JP-JNJFOC-20210829343

PATIENT
  Age: 31 Year
  Sex: Male
  Weight: 31.6 kg

DRUGS (21)
  1. CLINDAMYCIN PHOSPHATE. [Concomitant]
     Active Substance: CLINDAMYCIN PHOSPHATE
     Indication: SEBORRHOEIC DERMATITIS
     Dosage: 1 OTHER
     Route: 062
     Dates: start: 20210729, end: 20210807
  2. AZATHIOPRINE. [Concomitant]
     Active Substance: AZATHIOPRINE
     Indication: CROHN^S DISEASE
     Route: 048
     Dates: start: 20130426
  3. HEPARINOID [Concomitant]
     Active Substance: CHONDROITIN SULFATE (BOVINE)
     Indication: SEBORRHOEIC DERMATITIS
     Dosage: 0.3 OTHER
     Route: 062
     Dates: start: 20210729, end: 20210807
  4. HYDROCORTISONE BUTYRATE. [Concomitant]
     Active Substance: HYDROCORTISONE BUTYRATE
     Indication: SEBORRHOEIC DERMATITIS
     Dosage: 0.1 OTHER
     Route: 062
     Dates: start: 20210729, end: 20210807
  5. KETOCONAZOLE. [Concomitant]
     Active Substance: KETOCONAZOLE
     Indication: SEBORRHOEIC DERMATITIS
     Dosage: 2 OTHER
     Route: 062
     Dates: start: 20210729, end: 20210807
  6. CEFDNIR [Concomitant]
     Indication: SEBORRHOEIC DERMATITIS
     Route: 048
     Dates: start: 20210805, end: 20210807
  7. MOSAPRIDE CITRATE HYDRATE [Concomitant]
     Active Substance: MOSAPRIDE CITRATE DIHYDRATE
     Indication: CROHN^S DISEASE
     Route: 048
     Dates: start: 20130309
  8. TRIMEBUTINE MALEATE [Concomitant]
     Active Substance: TRIMEBUTINE MALEATE
     Indication: CROHN^S DISEASE
     Route: 048
     Dates: start: 20121214
  9. GUSELKUMAB [Suspect]
     Active Substance: GUSELKUMAB
     Indication: CROHN^S DISEASE
     Dosage: MED. KIT NO. 25126, 25127, 25128
     Route: 042
     Dates: start: 20210721, end: 20210721
  10. BIOFERMIN [BACILLUS SUBTILIS;ENTEROCOCCUS FAECALIS;LACTOBACILLUS ACIDO [Concomitant]
     Indication: CROHN^S DISEASE
     Route: 048
     Dates: start: 20121225
  11. MESALAZINE [Concomitant]
     Active Substance: MESALAMINE
     Indication: CROHN^S DISEASE
     Route: 048
     Dates: start: 20121213
  12. LOXOPROFEN SODIUM HYDRATE [Concomitant]
     Active Substance: LOXOPROFEN SODIUM DIHYDRATE
     Indication: SEBORRHOEIC DERMATITIS
     Route: 048
     Dates: start: 20210802, end: 20210802
  13. GUSELKUMAB [Suspect]
     Active Substance: GUSELKUMAB
  14. MINOCYCLINE HYDROCHLORIDE. [Concomitant]
     Active Substance: MINOCYCLINE HYDROCHLORIDE
     Indication: SEBORRHOEIC DERMATITIS
     Route: 048
     Dates: start: 20210729, end: 20210805
  15. NADIFLOXACIN [Concomitant]
     Active Substance: NADIFLOXACIN
     Indication: SEBORRHOEIC DERMATITIS
     Dosage: 1 OTHER
     Route: 062
     Dates: start: 20210729, end: 20210807
  16. ACETAMINOPHEN. [Concomitant]
     Active Substance: ACETAMINOPHEN
     Indication: SEBORRHOEIC DERMATITIS
     Route: 048
     Dates: start: 20210803, end: 20210809
  17. ESOMEPRAZOLE MAGNESIUM HYDRATE [Concomitant]
     Active Substance: ESOMEPRAZOLE MAGNESIUM
     Indication: CROHN^S DISEASE
     Route: 048
     Dates: start: 20140425
  18. ELENTAL [Concomitant]
     Active Substance: AMINO ACIDS\CARBOHYDRATES\MINERALS\SOYBEAN OIL\VITAMINS
     Indication: CROHN^S DISEASE
     Route: 048
     Dates: start: 20121229
  19. BENZOYL PEROXIDE. [Concomitant]
     Active Substance: BENZOYL PEROXIDE
     Indication: SEBORRHOEIC DERMATITIS
     Dosage: 2.5 OTHER
     Route: 062
     Dates: start: 20210729, end: 20210807
  20. LEVOCETIRIZINE HYDROCHLORIDE [Concomitant]
     Active Substance: LEVOCETIRIZINE HYDROCHLORIDE
     Indication: SEBORRHOEIC DERMATITIS
     Route: 048
     Dates: start: 20210805, end: 20210807
  21. DEXAMETHASONE PROPIONATE [Concomitant]
     Active Substance: DEXAMETHASONE DIPROPIONATE
     Indication: SEBORRHOEIC DERMATITIS
     Dosage: 0.1 OTHER
     Route: 062
     Dates: start: 20210805, end: 20210807

REACTIONS (1)
  - Angioedema [Recovering/Resolving]

NARRATIVE: CASE EVENT DATE: 20210806
